FAERS Safety Report 20305633 (Version 1)
Quarter: 2022Q1

REPORT INFORMATION
  Report Type: Spontaneous
  Country: GB (occurrence: GB)
  Receive Date: 20220106
  Receipt Date: 20220106
  Transmission Date: 20220424
  Serious: Yes (Hospitalization)
  Sender: FDA-Public Use
  Company Number: None

PATIENT

DRUGS (9)
  1. PREDNISOLONE [Suspect]
     Active Substance: PREDNISOLONE
     Indication: Gout
     Dosage: 30 MG (TABLET)
     Route: 048
     Dates: start: 20211224, end: 20211227
  2. ALFACALCIDOL [Concomitant]
     Active Substance: ALFACALCIDOL
  3. ALLOPURINOL [Concomitant]
     Active Substance: ALLOPURINOL
  4. LANSOPRAZOLE [Concomitant]
     Active Substance: LANSOPRAZOLE
  5. LINAGLIPTIN [Concomitant]
     Active Substance: LINAGLIPTIN
  6. RENAVIT [Concomitant]
  7. SODIUM BICARBONATE [Concomitant]
     Active Substance: SODIUM BICARBONATE
  8. THIAMINE [Concomitant]
     Active Substance: THIAMINE
  9. TRESIBA [Concomitant]
     Active Substance: INSULIN DEGLUDEC

REACTIONS (3)
  - Hyperglycaemia [Recovering/Resolving]
  - Polydipsia [Recovered/Resolved]
  - Polyuria [Recovered/Resolved]

NARRATIVE: CASE EVENT DATE: 20211225
